FAERS Safety Report 6961405-8 (Version None)
Quarter: 2010Q3

REPORT INFORMATION
  Report Type: 
  Country: None (occurrence: None)
  Receive Date: 20100901
  Receipt Date: 20100820
  Transmission Date: 20110219
  Serious: Yes (Hospitalization)
  Sender: FDA-Public Use
  Company Number: PHHY2010JP06549

PATIENT
  Sex: Female

DRUGS (15)
  1. LEPONEX / CLOZARIL (CLOZAPINE) LEX+TAB [Suspect]
     Indication: SCHIZOPHRENIA
     Dosage: 12.5 MG, QD
     Route: 048
     Dates: start: 20090910, end: 20090910
  2. LEPONEX / CLOZARIL (CLOZAPINE) LEX+TAB [Suspect]
     Dosage: 25 MG, QD
     Dates: start: 20090911, end: 20090911
  3. LEPONEX / CLOZARIL (CLOZAPINE) LEX+TAB [Suspect]
     Dosage: 50 MG, QD
     Dates: start: 20090912, end: 20090912
  4. LEPONEX / CLOZARIL (CLOZAPINE) LEX+TAB [Suspect]
     Dosage: UNK
     Dates: end: 20100202
  5. LEPONEX / CLOZARIL (CLOZAPINE) LEX+TAB [Suspect]
     Dosage: 12.5MG DAILY
     Dates: start: 20090924
  6. LEPONEX / CLOZARIL (CLOZAPINE) LEX+TAB [Suspect]
     Dosage: 325MG DAILY
     Dates: start: 20091110
  7. LEPONEX / CLOZARIL (CLOZAPINE) LEX+TAB [Suspect]
     Dosage: 200MG DAILY
     Dates: start: 20091117
  8. LEPONEX / CLOZARIL (CLOZAPINE) LEX+TAB [Suspect]
     Dosage: 225MG DAILY
     Dates: start: 20100118
  9. LEPONEX / CLOZARIL (CLOZAPINE) LEX+TAB [Suspect]
     Dosage: 250MG DAILY
     Dates: start: 20100128
  10. LEPONEX / CLOZARIL (CLOZAPINE) LEX+TAB [Suspect]
     Dosage: UNK
     Dates: start: 20100202
  11. LEPONEX / CLOZARIL (CLOZAPINE) LEX+TAB [Suspect]
     Dosage: 50MG DAILY
     Dates: start: 20100204
  12. LEPONEX / CLOZARIL (CLOZAPINE) LEX+TAB [Suspect]
     Dosage: 100MG DAILY
     Dates: start: 20100205
  13. LEPONEX / CLOZARIL (CLOZAPINE) LEX+TAB [Suspect]
     Dosage: 150MG DAILY
     Dates: start: 20100206
  14. LEPONEX / CLOZARIL (CLOZAPINE) LEX+TAB [Suspect]
     Dosage: 100MG DAILY
     Dates: start: 20100217
  15. ZYPREXA [Concomitant]

REACTIONS (3)
  - ALTERED STATE OF CONSCIOUSNESS [None]
  - PYREXIA [None]
  - SYNCOPE [None]
